FAERS Safety Report 6190673-8 (Version None)
Quarter: 2009Q2

REPORT INFORMATION
  Report Type: 
  Country: None (occurrence: None)
  Receive Date: 20090514
  Receipt Date: 20090506
  Transmission Date: 20091009
  Serious: Yes (Death)
  Sender: FDA-Public Use
  Company Number: HU-SANOFI-SYNTHELABO-F01200801771

PATIENT
  Sex: Male
  Weight: 79 kg

DRUGS (3)
  1. FLUOROURACIL [Suspect]
     Route: 042
     Dates: start: 20081027, end: 20081029
  2. DOCETAXEL [Suspect]
     Route: 041
     Dates: start: 20081027, end: 20081027
  3. OXALIPLATIN [Suspect]
     Indication: GASTRIC CANCER
     Route: 041
     Dates: start: 20081027, end: 20081027

REACTIONS (1)
  - DISSEMINATED INTRAVASCULAR COAGULATION [None]
